FAERS Safety Report 21115204 (Version 5)
Quarter: 2022Q4

REPORT INFORMATION
  Report Type: Report from Study
  Country: DE (occurrence: DE)
  Receive Date: 20220721
  Receipt Date: 20221022
  Transmission Date: 20230112
  Serious: Yes (Death, Hospitalization, Other)
  Sender: FDA-Public Use
  Company Number: DE-TAKEDA-2022TUS035952

PATIENT
  Age: 19 Year
  Sex: Male

DRUGS (2)
  1. IDURSULFASE [Suspect]
     Active Substance: IDURSULFASE
     Indication: Gaucher^s disease
     Dosage: 24 MILLIGRAM, 1/WEEK
     Route: 042
  2. IDURSULFASE [Suspect]
     Active Substance: IDURSULFASE
     Indication: Mucopolysaccharidosis II
     Dosage: 24 MILLIGRAM, 1/WEEK
     Route: 042
     Dates: end: 20221012

REACTIONS (8)
  - Death [Fatal]
  - General physical health deterioration [Recovering/Resolving]
  - Dyspnoea [Unknown]
  - Respiratory disorder [Not Recovered/Not Resolved]
  - Pyrexia [Not Recovered/Not Resolved]
  - Agitation [Unknown]
  - Muscle spasticity [Unknown]
  - Cyanosis [Unknown]

NARRATIVE: CASE EVENT DATE: 20220524
